FAERS Safety Report 11331593 (Version 2)
Quarter: 2015Q3

REPORT INFORMATION
  Report Type: Spontaneous
  Country: DK (occurrence: DK)
  Receive Date: 20150803
  Receipt Date: 20150812
  Transmission Date: 20151125
  Serious: Yes (Other)
  Sender: FDA-Public Use
  Company Number: ALCN2015DK004731

PATIENT
  Age: 44 Year
  Sex: Female
  Weight: 48 kg

DRUGS (7)
  1. ACULAR [Concomitant]
     Active Substance: KETOROLAC TROMETHAMINE
     Indication: INTRAOCULAR PRESSURE INCREASED
     Dosage: 1 GTT, TID
     Route: 047
     Dates: start: 20150628, end: 20150724
  2. ACULAR [Concomitant]
     Active Substance: KETOROLAC TROMETHAMINE
     Indication: POSTOPERATIVE CARE
  3. ACULAR [Concomitant]
     Active Substance: KETOROLAC TROMETHAMINE
     Indication: HYPERTENSION
  4. ALGAE NOS W/ARGININE/HYALURONATE SODIUM/PANTH [Concomitant]
     Indication: PRODUCT USED FOR UNKNOWN INDICATION
     Dosage: 1 DF, QD
     Route: 065
  5. MAXIDEX [Suspect]
     Active Substance: DEXAMETHASONE
     Dosage: 1 DF, 6QD
     Route: 047
  6. MAXIDEX [Suspect]
     Active Substance: DEXAMETHASONE
     Indication: POSTOPERATIVE CARE
     Dosage: 1 GTT, TID
     Route: 047
     Dates: start: 20150628, end: 20150714
  7. MAXIDEX [Suspect]
     Active Substance: DEXAMETHASONE
     Dosage: 1 GTT, TID
     Dates: start: 20150715, end: 20150724

REACTIONS (8)
  - Headache [Recovering/Resolving]
  - Eye pain [Not Recovered/Not Resolved]
  - Insomnia [Recovered/Resolved]
  - Hypertension [Not Recovered/Not Resolved]
  - Intraocular pressure increased [Not Recovered/Not Resolved]
  - Nasal dryness [Not Recovered/Not Resolved]
  - Glaucoma [Not Recovered/Not Resolved]
  - Eye irritation [Unknown]

NARRATIVE: CASE EVENT DATE: 201507
